FAERS Safety Report 22041309 (Version 1)
Quarter: 2023Q1

REPORT INFORMATION
  Report Type: Spontaneous
  Country: US (occurrence: None)
  Receive Date: 20230224
  Receipt Date: 20230224
  Transmission Date: 20230417
  Serious: Yes (Death)
  Sender: FDA-Public Use
  Company Number: None

PATIENT
  Age: 81 Year
  Sex: Female

DRUGS (12)
  1. LOKELMA [Suspect]
     Active Substance: SODIUM ZIRCONIUM CYCLOSILICATE
     Indication: Hyperkalaemia
     Dates: start: 20210621
  2. RENVELA [Concomitant]
     Active Substance: SEVELAMER CARBONATE
  3. GAS - X [Concomitant]
  4. ALENDRONATE [Concomitant]
     Active Substance: ALENDRONATE SODIUM
  5. BIDIL [Concomitant]
     Active Substance: HYDRALAZINE HYDROCHLORIDE\ISOSORBIDE DINITRATE
  6. CALCIUM ACETATE [Concomitant]
     Active Substance: CALCIUM ACETATE
  7. CARVEDILOL [Concomitant]
     Active Substance: CARVEDILOL
  8. CLOPIDOGREL [Suspect]
     Active Substance: CLOPIDOGREL BISULFATE
  9. FUROSEMIDE [Concomitant]
     Active Substance: FUROSEMIDE
  10. JANUVIA [Concomitant]
     Active Substance: SITAGLIPTIN PHOSPHATE
  11. LIVALO [Concomitant]
     Active Substance: PITAVASTATIN CALCIUM
  12. NIFEDIPINE [Concomitant]
     Active Substance: NIFEDIPINE

REACTIONS (1)
  - Death [None]

NARRATIVE: CASE EVENT DATE: 20230221
